FAERS Safety Report 4336024-2 (Version None)
Quarter: 2004Q2

REPORT INFORMATION
  Report Type: 
  Country: None (occurrence: None)
  Receive Date: 20040406
  Receipt Date: 20040401
  Transmission Date: 20050107
  Serious: Yes (Other)
  Sender: FDA-Public Use
  Company Number: THQ2003A01422

PATIENT
  Age: 45 Year
  Sex: Male

DRUGS (2)
  1. LANSOPRAZOLE [Suspect]
     Indication: HIATUS HERNIA
     Dosage: 30 MG PER ORAL
     Route: 048
     Dates: start: 20010101, end: 20010801
  2. LANSOPRAZOLE [Suspect]
     Indication: ILL-DEFINED DISORDER
     Dosage: 30 MG PER ORAL
     Route: 048
     Dates: start: 20010101, end: 20010801

REACTIONS (1)
  - PERIPHERAL SENSORY NEUROPATHY [None]
